FAERS Safety Report 11431555 (Version 1)
Quarter: 2015Q3

REPORT INFORMATION
  Report Type: Spontaneous
  Country: US (occurrence: US)
  Receive Date: 20150828
  Receipt Date: 20150828
  Transmission Date: 20151125
  Serious: Yes (Other)
  Sender: FDA-Public Use
  Company Number: US-PFIZER INC-2015274306

PATIENT
  Age: 58 Year
  Sex: Female
  Weight: 60 kg

DRUGS (9)
  1. COENZYME Q10 [Concomitant]
     Active Substance: UBIDECARENONE
     Dosage: UNK
  2. SELENIUM [Concomitant]
     Active Substance: SELENIUM
     Dosage: UNK
  3. VITAMIN C [Concomitant]
     Active Substance: ASCORBIC ACID
     Dosage: 500 MG, 2X/DAY
  4. MILK THISTLE [Concomitant]
     Active Substance: MILK THISTLE
     Dosage: 150 MG, DAILY
  5. IBRANCE [Suspect]
     Active Substance: PALBOCICLIB
     Indication: BREAST CANCER FEMALE
     Dosage: 125 MG/DAY, (3 WEEKS ON AND ONE WEEK OFF)
     Dates: start: 20150624
  6. XANAX [Concomitant]
     Active Substance: ALPRAZOLAM
     Indication: SLEEP DISORDER
     Dosage: 0.5 MG, 1X/DAY
     Dates: start: 201210
  7. LETROZOLE. [Concomitant]
     Active Substance: LETROZOLE
     Dosage: 2.5 MG, 1X/DAY
     Dates: start: 20150624
  8. SYNTHROID [Concomitant]
     Active Substance: LEVOTHYROXINE SODIUM
     Dosage: 75 ?G, DAILY
     Dates: start: 201210
  9. CALCIUM, MAGNESIUM + VITAMIN D3 COMBINATION [Concomitant]
     Dosage: 1 DF, DAILY

REACTIONS (9)
  - Pruritus [Not Recovered/Not Resolved]
  - Neutrophil count decreased [Unknown]
  - Erythema [Not Recovered/Not Resolved]
  - Recall phenomenon [Not Recovered/Not Resolved]
  - Pain of skin [Not Recovered/Not Resolved]
  - Herpes zoster [Unknown]
  - White blood cell count decreased [Unknown]
  - Anaemia [Unknown]
  - Skin burning sensation [Not Recovered/Not Resolved]

NARRATIVE: CASE EVENT DATE: 2015
